FAERS Safety Report 14709046 (Version 2)
Quarter: 2018Q2

REPORT INFORMATION
  Report Type: Spontaneous
  Country: RO (occurrence: RO)
  Receive Date: 20180403
  Receipt Date: 20180412
  Transmission Date: 20180711
  Serious: Yes (Other)
  Sender: FDA-Public Use
  Company Number: RO-AUROBINDO-AUR-APL-2018-017701

PATIENT
  Age: 54 Year
  Sex: Male

DRUGS (9)
  1. RIBAVIRIN FILM COATED TABLETS [Suspect]
     Active Substance: RIBAVIRIN
     Indication: CHRONIC HEPATITIS C
     Dosage: UNK
     Route: 048
  2. OMBITASVIR [Suspect]
     Active Substance: OMBITASVIR
     Indication: CHRONIC HEPATITIS C
     Dosage: UNK ()
  3. RITONAVIR. [Suspect]
     Active Substance: RITONAVIR
     Dosage: UNK ()
  4. DASABUVIR [Suspect]
     Active Substance: DASABUVIR
     Dosage: UNK ()
  5. PARITAPREVIR [Suspect]
     Active Substance: PARITAPREVIR
     Dosage: UNK ()
  6. OMBITASVIR [Suspect]
     Active Substance: OMBITASVIR
     Dosage: UNK ()
  7. RITONAVIR. [Suspect]
     Active Substance: RITONAVIR
     Indication: CHRONIC HEPATITIS C
     Dosage: UNK ()
  8. DASABUVIR [Suspect]
     Active Substance: DASABUVIR
     Indication: CHRONIC HEPATITIS C
     Dosage: UNK ()
  9. PARITAPREVIR [Suspect]
     Active Substance: PARITAPREVIR
     Indication: CHRONIC HEPATITIS C
     Dosage: UNK ()

REACTIONS (2)
  - Hepatitis B [Recovering/Resolving]
  - Hepatitis B reactivation [Recovering/Resolving]
